FAERS Safety Report 5226939-5 (Version None)
Quarter: 2007Q1

REPORT INFORMATION
  Report Type: 
  Country: None (occurrence: None)
  Receive Date: 20070201
  Receipt Date: 20070201
  Transmission Date: 20070707
  Serious: Yes (Hospitalization)
  Sender: FDA-Public Use
  Company Number: None

PATIENT
  Sex: Female
  Weight: 45.3597 kg

DRUGS (1)
  1. CETUXIMAB [Suspect]
     Indication: TONSIL CANCER
     Dosage: 375MG Q WEEK IV
     Route: 042
     Dates: start: 20061005, end: 20061214

REACTIONS (3)
  - DYSPHAGIA [None]
  - OESOPHAGEAL STENOSIS [None]
  - PHARYNGEAL OEDEMA [None]
